FAERS Safety Report 8467769-0 (Version None)
Quarter: 2012Q2

REPORT INFORMATION
  Report Type: 
  Country: None (occurrence: None)
  Receive Date: 20120626
  Receipt Date: 20120622
  Transmission Date: 20120825
  Serious: Yes (Hospitalization)
  Sender: FDA-Public Use
  Company Number: IT-ROCHE-1081463

PATIENT

DRUGS (6)
  1. VINCRISTINE [Concomitant]
     Dosage: DRUG: VINCRISTINA PFIZER
     Route: 042
     Dates: start: 20111020, end: 20111020
  2. PREDNISONE TAB [Concomitant]
     Route: 048
     Dates: start: 20111021, end: 20111024
  3. ENOXAPARIN SODIUM [Concomitant]
     Route: 058
  4. NEXIUM [Concomitant]
     Route: 048
  5. MABTHERA [Suspect]
     Indication: NON-HODGKIN'S LYMPHOMA
     Route: 042
     Dates: start: 20111102, end: 20111102
  6. CYCLOPHOSPHAMIDE [Concomitant]
     Dosage: DRUG: ENDOXAN BAXTER
     Route: 042
     Dates: start: 20111020, end: 20111020

REACTIONS (4)
  - INVESTIGATION ABNORMAL [None]
  - HYPERTENSION [None]
  - DYSPNOEA [None]
  - ANAPHYLACTIC REACTION [None]
